FAERS Safety Report 24434056 (Version 1)
Quarter: 2024Q4

REPORT INFORMATION
  Report Type: Spontaneous
  Country: GB (occurrence: GB)
  Receive Date: 20241014
  Receipt Date: 20241014
  Transmission Date: 20250114
  Serious: Yes (Hospitalization, Other)
  Sender: TEVA
  Company Number: GB-MHRA-TPP33295371C6287575YC1728042127686

PATIENT
  Age: 32 Year
  Sex: Female
  Weight: 66 kg

DRUGS (3)
  1. DOXYCYCLINE [Suspect]
     Active Substance: DOXYCYCLINE
     Indication: Ill-defined disorder
     Route: 065
     Dates: start: 20241004
  2. COCODAMOL [Concomitant]
     Active Substance: ACETAMINOPHEN\CODEINE PHOSPHATE
     Indication: Ill-defined disorder
     Dosage: TAKE 1 OR 2 4 TIMES/DAY
     Route: 065
     Dates: start: 20240205
  3. CITALOPRAM [Concomitant]
     Active Substance: CITALOPRAM
     Indication: Ill-defined disorder
     Route: 065
     Dates: start: 20240205

REACTIONS (2)
  - Urticaria [Recovering/Resolving]
  - Liver function test abnormal [Recovering/Resolving]

NARRATIVE: CASE EVENT DATE: 20241004
